FAERS Safety Report 7533091-X (Version None)
Quarter: 2011Q2

REPORT INFORMATION
  Report Type: 
  Country: None (occurrence: None)
  Receive Date: 20110608
  Receipt Date: 20110607
  Transmission Date: 20111010
  Serious: No
  Sender: FDA-Public Use
  Company Number: US-TEVA-285037USA

PATIENT
  Age: 32 Year
  Sex: Female
  Weight: 56.75 kg

DRUGS (3)
  1. ZYRTEC [Concomitant]
     Indication: HYPERSENSITIVITY
     Dates: end: 20110515
  2. PLAN B ONE-STEP [Suspect]
     Indication: POST COITAL CONTRACEPTION
     Dosage: 1.5 MILLIGRAM;
     Route: 048
     Dates: start: 20110517, end: 20110517
  3. CLARITIN [Concomitant]
     Indication: HYPERSENSITIVITY
     Dates: end: 20110515

REACTIONS (4)
  - MENSTRUATION IRREGULAR [None]
  - PREGNANCY AFTER POST COITAL CONTRACEPTION [None]
  - BREAST PAIN [None]
  - DRUG INEFFECTIVE [None]
